FAERS Safety Report 5270301-6 (Version None)
Quarter: 2007Q1

REPORT INFORMATION
  Report Type: 
  Country: None (occurrence: None)
  Receive Date: 20070320
  Receipt Date: 20070308
  Transmission Date: 20070707
  Serious: Yes (Death, Other)
  Sender: FDA-Public Use
  Company Number: US-PFIZER INC-2005007511

PATIENT
  Sex: Female
  Weight: 88.9 kg

DRUGS (8)
  1. NEURONTIN [Suspect]
     Indication: TRIGEMINAL NEURALGIA
     Route: 048
     Dates: start: 20020101, end: 20021201
  2. NEURONTIN [Suspect]
     Indication: PAIN
  3. TRILEPTAL [Concomitant]
  4. PREVACID [Concomitant]
  5. AMITRIPTYLINE HCL [Concomitant]
  6. ULTRACET [Concomitant]
  7. SUCRALFATE [Concomitant]
  8. PROMETHAZINE [Concomitant]

REACTIONS (7)
  - AMNESIA [None]
  - COMPLETED SUICIDE [None]
  - DEAFNESS [None]
  - DEPRESSION [None]
  - DRUG INEFFECTIVE [None]
  - GUN SHOT WOUND [None]
  - HYPOAESTHESIA [None]
